FAERS Safety Report 8888297 (Version 2)
Quarter: 2012Q4

REPORT INFORMATION
  Report Type: 
  Country: US (occurrence: US)
  Receive Date: 20121106
  Receipt Date: 20121203
  Transmission Date: 20130627
  Serious: Yes (Other)
  Sender: FDA-Public Use
  Company Number: US-PFIZER INC-2012268556

PATIENT
  Age: 91 Year
  Sex: Male
  Weight: 73.47 kg

DRUGS (6)
  1. XALATAN [Suspect]
     Indication: GLAUCOMA
     Dosage: at bedtime
     Route: 047
     Dates: start: 20110110
  2. XALATAN [Suspect]
     Indication: OPEN ANGLE GLAUCOMA
  3. COMBIGAN [Concomitant]
     Indication: EYE DISORDER
     Dosage: UNK
  4. PILOCARPINE [Concomitant]
     Indication: EYE DISORDER
     Dosage: UNK
  5. AZOPT [Concomitant]
     Indication: EYE DISORDER
     Dosage: UNK
  6. EYLEA [Concomitant]
     Indication: MACULAR DEGENERATION
     Dosage: UNK

REACTIONS (1)
  - Retinal haemorrhage [Unknown]
